FAERS Safety Report 14044912 (Version 2)
Quarter: 2018Q1

REPORT INFORMATION
  Report Type: Spontaneous
  Country: GB (occurrence: GB)
  Receive Date: 20171005
  Receipt Date: 20180119
  Transmission Date: 20180508
  Serious: Yes (Other)
  Sender: FDA-Public Use
  Company Number: GB-REGENERON PHARMACEUTICALS, INC.-2017-23260

PATIENT

DRUGS (1)
  1. EYLEA [Suspect]
     Active Substance: AFLIBERCEPT
     Indication: DIABETIC RETINAL OEDEMA
     Dosage: ONCE
     Dates: start: 20170907, end: 20170907

REACTIONS (3)
  - Body temperature increased [Unknown]
  - Malignant hypertension [Unknown]
  - Systolic hypertension [Unknown]

NARRATIVE: CASE EVENT DATE: 20170909
